FAERS Safety Report 7264917-5 (Version None)
Quarter: 2011Q1

REPORT INFORMATION
  Report Type: 
  Country: None (occurrence: None)
  Receive Date: 20110131
  Receipt Date: 20110125
  Transmission Date: 20110831
  Serious: Yes (Death, Hospitalization)
  Sender: FDA-Public Use
  Company Number: PHHY2010US80047

PATIENT
  Sex: Male

DRUGS (3)
  1. DILANTIN [Concomitant]
  2. EXJADE [Suspect]
     Indication: LYMPHOPROLIFERATIVE DISORDER
     Dosage: 500 MG, QD
     Route: 048
  3. SINEMET [Concomitant]

REACTIONS (4)
  - THROMBOCYTOPENIA [None]
  - FALL [None]
  - MOTOR DYSFUNCTION [None]
  - SUBDURAL HAEMATOMA [None]
